FAERS Safety Report 26140946 (Version 1)
Quarter: 2025Q4

REPORT INFORMATION
  Report Type: Spontaneous
  Country: US (occurrence: US)
  Receive Date: 20251210
  Receipt Date: 20251210
  Transmission Date: 20260118
  Serious: Yes (Other)
  Sender: ALEMBIC
  Company Number: US-ALEMBIC PHARMACUETICALS LIMITED-2025SCAL001683

PATIENT

DRUGS (7)
  1. METHOTREXATE [Suspect]
     Active Substance: METHOTREXATE
     Indication: Rheumatoid arthritis
     Dosage: 12.5 MILLIGRAM, ONCE WEEKLY
     Route: 065
  2. PREDNISONE [Suspect]
     Active Substance: PREDNISONE
     Indication: Rheumatoid arthritis
     Dosage: 5 MILLIGRAM, QD
     Route: 048
  3. PREDNISONE [Suspect]
     Active Substance: PREDNISONE
     Dosage: 15 MILLIGRAM, QD
     Route: 065
  4. HYDROXYCHLOROQUINE [Suspect]
     Active Substance: HYDROXYCHLOROQUINE
     Indication: Rheumatoid arthritis
     Dosage: 200 MILLIGRAM, TWICE WEEKLY, AND, FOR THE PRECEDING 5 MONTHS
     Route: 065
  5. HYDROXYCHLOROQUINE [Suspect]
     Active Substance: HYDROXYCHLOROQUINE
     Dosage: 200 MILLIGRAM, QD
     Route: 065
  6. TOFACITINIB [Suspect]
     Active Substance: TOFACITINIB
     Indication: Rheumatoid arthritis
     Dosage: EXTENDED RELEASE 11 MG ONCE DAILY
     Route: 065
  7. Immunoglobulin [Concomitant]
     Indication: Immunosuppression
     Dosage: UNK
     Route: 042

REACTIONS (7)
  - Cytomegalovirus chorioretinitis [Unknown]
  - Cystoid macular oedema [Unknown]
  - Retinal degeneration [Unknown]
  - Uveitis [Unknown]
  - Eye haemorrhage [Unknown]
  - Visual acuity reduced [Recovering/Resolving]
  - Intraocular pressure increased [Unknown]
